FAERS Safety Report 7827659-0 (Version None)
Quarter: 2011Q4

REPORT INFORMATION
  Report Type: 
  Country: None (occurrence: None)
  Receive Date: 20111020
  Receipt Date: 20110901
  Transmission Date: 20120403
  Serious: Yes (Other)
  Sender: FDA-Public Use
  Company Number: US-BAYER-2011-082594

PATIENT
  Age: 85 Year
  Sex: Female
  Weight: 63 kg

DRUGS (4)
  1. CALCIUM CARBONATE W/VITAMIN D NOS [Concomitant]
     Indication: VITAMIN SUPPLEMENTATION
  2. TRAVATAN [Concomitant]
  3. PHILLIPS' MILK OF MAGNESIA LIQUID ORIGINAL [Suspect]
     Indication: CONSTIPATION
     Dosage: COUNT SIZE 12OZ
     Route: 048
     Dates: start: 20110830, end: 20110830
  4. LOVAZA [Concomitant]
     Indication: VITAMIN SUPPLEMENTATION

REACTIONS (2)
  - ABDOMINAL PAIN UPPER [None]
  - FAECES DISCOLOURED [None]
